FAERS Safety Report 8758660 (Version 4)
Quarter: 2013Q2

REPORT INFORMATION
  Report Type: Spontaneous
  Country: JP (occurrence: JP)
  Receive Date: 20120829
  Receipt Date: 20130415
  Transmission Date: 20140414
  Serious: Yes (Life-Threatening, Hospitalization, Other)
  Sender: FDA-Public Use
  Company Number: JP-ABBOTT-12P-087-0972361-00

PATIENT
  Age: 65 Year
  Sex: Male
  Weight: 53 kg

DRUGS (12)
  1. HUMIRA [Suspect]
     Indication: PRODUCT USED FOR UNKNOWN INDICATION
     Dates: start: 201011, end: 20110204
  2. HUMIRA [Suspect]
     Dates: start: 20110520, end: 20110603
  3. METHOTREXATE [Suspect]
     Indication: RHEUMATOID ARTHRITIS
     Dosage: 10 MG/WEEK
     Route: 048
     Dates: end: 20110204
  4. MIGLITOL [Concomitant]
     Indication: PRODUCT USED FOR UNKNOWN INDICATION
     Route: 048
  5. PREDNISOLONE [Concomitant]
     Indication: RHEUMATOID ARTHRITIS
     Route: 048
  6. PREDNISOLONE [Concomitant]
     Route: 048
  7. LANSOPRAZOLE [Concomitant]
     Indication: RHEUMATOID ARTHRITIS
     Route: 048
  8. SUCRALFATE HYDRATE [Concomitant]
     Indication: RHEUMATOID ARTHRITIS
     Route: 048
  9. ALFACALCIDOL [Concomitant]
     Indication: RHEUMATOID ARTHRITIS
     Route: 048
  10. AMLODIPINE BESILATE [Concomitant]
     Indication: RHEUMATOID ARTHRITIS
     Route: 048
  11. SULFAMETHOXAZOLE W/TRIMETHOPRIM [Concomitant]
     Indication: RHEUMATOID ARTHRITIS
     Route: 048
  12. ALENDRONATE SODIUM [Concomitant]
     Indication: RHEUMATOID ARTHRITIS
     Dosage: 35 MG DAILY AT TIME OF AWAKENING
     Route: 048

REACTIONS (4)
  - Ophthalmoplegia [Recovered/Resolved]
  - VIIth nerve paralysis [Recovered/Resolved]
  - Lymphoproliferative disorder [Recovered/Resolved]
  - Upper gastrointestinal haemorrhage [Recovered/Resolved]
